FAERS Safety Report 9727375 (Version 2)
Quarter: 2013Q4

REPORT INFORMATION
  Report Type: Spontaneous
  Country: JP (occurrence: JP)
  Receive Date: 20131203
  Receipt Date: 20131218
  Transmission Date: 20140711
  Serious: Yes (Other)
  Sender: FDA-Public Use
  Company Number: JP-PFIZER INC-2013341118

PATIENT
  Age: 76 Year
  Sex: Male

DRUGS (2)
  1. GENOTROPIN TC [Suspect]
     Indication: GROWTH HORMONE DEFICIENCY
     Dosage: 0.2 MG, DAILY
     Route: 058
     Dates: start: 20090527
  2. DEPAKENE [Concomitant]

REACTIONS (1)
  - Epilepsy [Recovered/Resolved]
